FAERS Safety Report 17132228 (Version 4)
Quarter: 2020Q1

REPORT INFORMATION
  Report Type: Report from Study
  Country: US (occurrence: US)
  Receive Date: 20191210
  Receipt Date: 20200206
  Transmission Date: 20200409
  Serious: No
  Sender: FDA-Public Use
  Company Number: NVSC2019US063528

PATIENT
  Sex: Male

DRUGS (2)
  1. ZOLGENSMA [Suspect]
     Active Substance: ONASEMNOGENE ABEPARVOVEC-XIOI
     Indication: SPINAL MUSCULAR ATROPHY
     Dosage: UNK UNK, ONCE/SINGLE
     Route: 042
     Dates: start: 20190312
  2. PREDNISOLONE. [Concomitant]
     Active Substance: PREDNISOLONE
     Indication: PRODUCT USED FOR UNKNOWN INDICATION
     Dosage: UNK
     Route: 065

REACTIONS (8)
  - White blood cell count decreased [Unknown]
  - Back disorder [Unknown]
  - Gastrooesophageal reflux disease [Unknown]
  - Fluid retention [Recovering/Resolving]
  - Body temperature increased [Recovering/Resolving]
  - Irritability [Unknown]
  - Platelet count abnormal [Unknown]
  - Increased upper airway secretion [Unknown]
